FAERS Safety Report 7417011-4 (Version None)
Quarter: 2011Q2

REPORT INFORMATION
  Report Type: 
  Country: None (occurrence: None)
  Receive Date: 20110412
  Receipt Date: 20110412
  Transmission Date: 20111010
  Serious: Yes (Other)
  Sender: FDA-Public Use
  Company Number: None

PATIENT
  Sex: Male
  Weight: 83.9154 kg

DRUGS (1)
  1. ISOTRETINOIN [Suspect]
     Indication: ROSACEA
     Dosage: 40MG ONCE A DAY

REACTIONS (1)
  - SALIVARY HYPERSECRETION [None]
